FAERS Safety Report 6508607-2 (Version None)
Quarter: 2009Q4

REPORT INFORMATION
  Report Type: 
  Country: None (occurrence: None)
  Receive Date: 20091221
  Receipt Date: 20091019
  Transmission Date: 20100525
  Serious: No
  Sender: FDA-Public Use
  Company Number: US-ABBOTT-09P-163-0604208-00

PATIENT
  Age: 25 Year
  Sex: Female

DRUGS (4)
  1. NIMBEX [Suspect]
     Indication: PARALYSIS
     Dosage: PER MINUTE
  2. NIMBEX [Suspect]
     Indication: ACUTE RESPIRATORY DISTRESS SYNDROME
  3. NIMBEX [Suspect]
     Indication: RENAL FAILURE
  4. UNKNOWN RENAL REPLACEMENT THERAPY [Concomitant]
     Indication: RENAL FAILURE

REACTIONS (1)
  - DRUG INEFFECTIVE [None]
